FAERS Safety Report 9419784 (Version 2)
Quarter: 2013Q3

REPORT INFORMATION
  Report Type: Spontaneous
  Country: IT (occurrence: None)
  Receive Date: 20130723
  Receipt Date: 20130801
  Transmission Date: 20140515
  Serious: Yes (Hospitalization)
  Sender: FDA-Public Use
  Company Number: AUR-APL-2013-05939

PATIENT
  Age: 24 Year
  Sex: Female

DRUGS (4)
  1. BISOPROLOL [Suspect]
     Indication: PRODUCT USED FOR UNKNOWN INDICATION
     Dosage: 8.75MG, TOTAL, ORAL
     Route: 048
     Dates: start: 20130608, end: 20130608
  2. NITROFURANTOIN [Suspect]
     Indication: PRODUCT USED FOR UNKNOWN INDICATION
     Dosage: 1000 MG, TOTAL ORAL
     Route: 048
     Dates: start: 20130608, end: 20130608
  3. LASIX (FUROSEMIDE) [Suspect]
     Indication: PRODUCT USED FOR UNKNOWN INDICATION
     Route: 048
     Dates: start: 20130608, end: 20130608
  4. SYNFLEX [Suspect]
     Indication: PRODUCT USED FOR UNKNOWN INDICATION
     Route: 048
     Dates: start: 20130608, end: 20130608

REACTIONS (2)
  - Nausea [None]
  - Drug abuse [None]
